FAERS Safety Report 4581903-4 (Version None)
Quarter: 2005Q1

REPORT INFORMATION
  Report Type: 
  Country: None (occurrence: None)
  Receive Date: 20050214
  Receipt Date: 20040401
  Transmission Date: 20050727
  Serious: No
  Sender: FDA-Public Use
  Company Number: US-GLAXOSMITHKLINE-A0505581A

PATIENT
  Age: 55 Year
  Sex: Female

DRUGS (3)
  1. LAMICTAL [Suspect]
     Indication: BIPOLAR DISORDER
     Dosage: 175MG TWICE PER DAY
     Route: 048
  2. ZYPREXA [Concomitant]
     Dosage: .5MG PER DAY
  3. KLONOPIN [Concomitant]
     Dosage: .5MG PER DAY

REACTIONS (5)
  - FEELING HOT [None]
  - HEADACHE [None]
  - NAUSEA [None]
  - RASH MACULAR [None]
  - TONGUE DISORDER [None]
